FAERS Safety Report 5296229-3 (Version None)
Quarter: 2007Q2

REPORT INFORMATION
  Report Type: 
  Country: None (occurrence: None)
  Receive Date: 20070413
  Receipt Date: 20070412
  Transmission Date: 20071010
  Serious: Yes (Hospitalization)
  Sender: FDA-Public Use
  Company Number: FR-GLAXOSMITHKLINE-B0465875A

PATIENT
  Age: 72 Year
  Sex: Male

DRUGS (1)
  1. CLAMOXYL [Suspect]
     Dosage: 1G SINGLE DOSE
     Route: 048
     Dates: start: 20060315, end: 20060315

REACTIONS (4)
  - FACE OEDEMA [None]
  - GENERALISED ERYTHEMA [None]
  - MALAISE [None]
  - TACHYCARDIA [None]
